FAERS Safety Report 10926652 (Version 1)
Quarter: 2015Q1

REPORT INFORMATION
  Report Type: Spontaneous
  Country: US (occurrence: US)
  Receive Date: 20150318
  Receipt Date: 20150318
  Transmission Date: 20150721
  Serious: No
  Sender: FDA-Public Use
  Company Number: US-BAYER-2015-045445

PATIENT
  Age: 87 Year
  Sex: Female

DRUGS (3)
  1. CALCIUM-D3 [CALCIUM CARBONATE,COLECALCIFEROL] [Concomitant]
  2. ALEVE PM [Suspect]
     Active Substance: DIPHENHYDRAMINE HYDROCHLORIDE\NAPROXEN SODIUM
     Indication: SLEEP DISORDER THERAPY
     Dosage: 1 DF, ONCE
     Route: 048
     Dates: start: 20150315, end: 20150315
  3. TEMAZEPAM. [Concomitant]
     Active Substance: TEMAZEPAM

REACTIONS (1)
  - Medication error [None]

NARRATIVE: CASE EVENT DATE: 20150315
